FAERS Safety Report 12078830 (Version 1)
Quarter: 2016Q1

REPORT INFORMATION
  Report Type: Spontaneous
  Country: US (occurrence: US)
  Receive Date: 20160216
  Receipt Date: 20160216
  Transmission Date: 20160526
  Serious: No
  Sender: FDA-Public Use
  Company Number: US-FRESENIUS KABI-FK201600770

PATIENT
  Sex: Female

DRUGS (1)
  1. TOBRAMYCIN INJECTION, USP [Suspect]
     Active Substance: TOBRAMYCIN
     Indication: BRONCHIECTASIS
     Route: 055
     Dates: start: 20160210, end: 20160211

REACTIONS (4)
  - Product use issue [Unknown]
  - Nausea [Recovered/Resolved]
  - Sensitivity of teeth [Recovered/Resolved]
  - Malaise [Recovered/Resolved]

NARRATIVE: CASE EVENT DATE: 20160211
